FAERS Safety Report 5445337-2 (Version None)
Quarter: 2007Q3

REPORT INFORMATION
  Report Type: 
  Country: None (occurrence: None)
  Receive Date: 20070906
  Receipt Date: 20070509
  Transmission Date: 20080115
  Serious: No
  Sender: FDA-Public Use
  Company Number: A0650637A

PATIENT
  Age: 62 Year
  Sex: Female

DRUGS (4)
  1. REQUIP [Suspect]
     Indication: RESTLESS LEGS SYNDROME
     Dosage: 1MG PER DAY
     Route: 048
     Dates: start: 20060801
  2. VITAMINS [Concomitant]
  3. CALCIUM [Concomitant]
  4. LEXAPRO [Concomitant]

REACTIONS (3)
  - COUGH [None]
  - HOT FLUSH [None]
  - INFECTION [None]
